FAERS Safety Report 9046152 (Version 1)
Quarter: 2013Q1

REPORT INFORMATION
  Report Type: Spontaneous
  Country: US (occurrence: US)
  Receive Date: 20130201
  Receipt Date: 20130201
  Transmission Date: 20140127
  Serious: No
  Sender: FDA-Public Use
  Company Number: PHEH2013US002598

PATIENT
  Sex: Female

DRUGS (8)
  1. TASIGNA [Suspect]
     Indication: CHRONIC MYELOID LEUKAEMIA
     Dosage: 400 MG, BID
     Route: 048
  2. TASIGNA [Suspect]
     Dosage: 200 MG, BID
     Route: 048
  3. SYNTHROID [Concomitant]
     Dosage: 100 UG,
  4. LISINOPRIL [Concomitant]
     Dosage: 10 MG,
  5. METOPROLOL [Concomitant]
     Dosage: 100 MG,
  6. SEROQUEL [Concomitant]
     Dosage: 100 MG,
  7. CRESTOR [Concomitant]
     Dosage: 10 MG,
  8. MENOSTAR [Concomitant]
     Dosage: 14 UG,

REACTIONS (3)
  - Dry skin [Recovered/Resolved]
  - Nasopharyngitis [Unknown]
  - Vomiting [Unknown]
